FAERS Safety Report 13558994 (Version 2)
Quarter: 2017Q2

REPORT INFORMATION
  Report Type: Spontaneous
  Country: PL (occurrence: PL)
  Receive Date: 20170518
  Receipt Date: 20170522
  Transmission Date: 20170830
  Serious: Yes (Other)
  Sender: FDA-Public Use
  Company Number: PL-VALIDUS PHARMACEUTICALS LLC-PL-2017VAL000737

PATIENT
  Sex: Female

DRUGS (1)
  1. PENTOXIFYLLINE. [Suspect]
     Active Substance: PENTOXIFYLLINE
     Indication: RETINOPATHY
     Dosage: 1 DOSAGE FORM; ONCE
     Route: 048

REACTIONS (5)
  - Blood pressure decreased [Recovered/Resolved]
  - Vision blurred [Recovered/Resolved]
  - Product quality issue [Unknown]
  - Circulatory collapse [Recovered/Resolved]
  - Agitation [Recovered/Resolved]
